FAERS Safety Report 24571372 (Version 1)
Quarter: 2024Q4

REPORT INFORMATION
  Report Type: Spontaneous
  Country: FR (occurrence: FR)
  Receive Date: 20241101
  Receipt Date: 20241101
  Transmission Date: 20250115
  Serious: Yes (Other)
  Sender: AUROBINDO
  Company Number: FR-AFSSAPS-PA2024001565

PATIENT
  Age: 23 Year
  Sex: Female
  Weight: 57 kg

DRUGS (5)
  1. RIZATRIPTAN [Interacting]
     Active Substance: RIZATRIPTAN
     Indication: Migraine
     Dosage: 10 MILLIGRAM, ONCE A DAY(8 TO 15 DAYS/MONTH)
     Route: 048
     Dates: start: 2018
  2. BRINTELLIX [Suspect]
     Active Substance: VORTIOXETINE HYDROBROMIDE
     Indication: Panic disorder
     Dosage: 10 MILLIGRAM, ONCE A DAY,1CP EVERY MORNING
     Route: 048
     Dates: start: 20240921
  3. DIENOGEST [Concomitant]
     Active Substance: DIENOGEST
     Indication: Product used for unknown indication
     Dosage: UNK
     Route: 065
  4. OMEPRAZOLE [Concomitant]
     Active Substance: OMEPRAZOLE
     Indication: Product used for unknown indication
     Dosage: UNK,OMEPRAZOLE BIOGARAN 10 MG, ENTERIC CAPSULE
     Route: 065
  5. ALPRAZOLAM [Concomitant]
     Active Substance: ALPRAZOLAM
     Indication: Product used for unknown indication
     Dosage: UNK
     Route: 065

REACTIONS (1)
  - Serotonin syndrome [Recovered/Resolved]

NARRATIVE: CASE EVENT DATE: 20240922
